FAERS Safety Report 18388087 (Version 1)
Quarter: 2020Q4

REPORT INFORMATION
  Report Type: Spontaneous
  Country: US (occurrence: US)
  Receive Date: 20201015
  Receipt Date: 20201015
  Transmission Date: 20210114
  Serious: No
  Sender: FDA-Public Use
  Company Number: US-MYLANLABS-2020M1085891

PATIENT
  Sex: Female
  Weight: 62 kg

DRUGS (2)
  1. DIAZEPAM. [Concomitant]
     Active Substance: DIAZEPAM
     Dosage: UNK
  2. BUSPIRONE HYDROCHLORIDE TABLETS, USP [Suspect]
     Active Substance: BUSPIRONE HYDROCHLORIDE
     Indication: PRODUCT USED FOR UNKNOWN INDICATION
     Dosage: UNK, BID
     Route: 048

REACTIONS (4)
  - Burning mouth syndrome [Unknown]
  - Dysgeusia [Unknown]
  - Lip dry [Unknown]
  - Hypersensitivity [Unknown]
